FAERS Safety Report 4717285-4 (Version None)
Quarter: 2005Q3

REPORT INFORMATION
  Report Type: 
  Country: None (occurrence: None)
  Receive Date: 20050719
  Receipt Date: 20050425
  Transmission Date: 20060218
  Serious: Yes (Disabling, Other)
  Sender: FDA-Public Use
  Company Number: PHEH2005US04768

PATIENT
  Age: 67 Year
  Sex: Female

DRUGS (5)
  1. ZOMETA [Suspect]
     Indication: BREAST CANCER METASTATIC
     Dosage: 4MG Q4WK
     Route: 042
     Dates: start: 20020101, end: 20050401
  2. ARIMIDEX [Suspect]
     Indication: BREAST CANCER
     Dosage: 1 MG, QD
     Dates: start: 19991101
  3. ATENOLOL TABLETS USP (NGX) [Concomitant]
     Indication: HYPERTENSION
     Dosage: 50 MG, QD
  4. SENOKOT /USA/ [Concomitant]
     Dosage: UNK QD
  5. COLACE [Concomitant]
     Dosage: UNK QD

REACTIONS (8)
  - ARTHRALGIA [None]
  - ASEPTIC NECROSIS BONE [None]
  - IMPAIRED HEALING [None]
  - INFECTION [None]
  - PAIN [None]
  - PERIODONTAL DISEASE [None]
  - SWELLING FACE [None]
  - TOOTH EXTRACTION [None]
